FAERS Safety Report 22607742 (Version 1)
Quarter: 2023Q2

REPORT INFORMATION
  Report Type: Spontaneous
  Country: US (occurrence: US)
  Receive Date: 20230616
  Receipt Date: 20230616
  Transmission Date: 20230722
  Serious: No
  Sender: FDA-Public Use
  Company Number: US-CIPLA LTD.-2022US06651

PATIENT

DRUGS (11)
  1. WARFARIN [Suspect]
     Active Substance: WARFARIN
     Indication: Cerebrovascular accident
     Dosage: 1 MILLIGRAM, QD (AT NIGHT TIME)
     Route: 048
     Dates: start: 2006
  2. WARFARIN [Suspect]
     Active Substance: WARFARIN
     Indication: Prophylaxis
     Dosage: 2 MILLIGRAM, QD SOMETIMES
     Route: 048
  3. WARFARIN [Suspect]
     Active Substance: WARFARIN
     Indication: Cardiac disorder
  4. LANTUS [Concomitant]
     Active Substance: INSULIN GLARGINE
     Indication: Diabetes mellitus
     Dosage: 11 (UNITS UNSPECIFIED), TID
     Route: 065
  5. LANTUS [Concomitant]
     Active Substance: INSULIN GLARGINE
     Dosage: 13 (UNITS UNSPECIFIED), TID (AT NIGHT)
     Route: 065
  6. HUMALOG [Concomitant]
     Active Substance: INSULIN LISPRO
     Indication: Diabetes mellitus
     Dosage: UNK, QD
     Route: 065
     Dates: end: 2022
  7. CARDILOL [CARVEDILOL] [Concomitant]
     Indication: Hypertension
     Dosage: 6.25 MILLIGRAM, QD (AT NIGHT)/1 TIME AT NIGHT
     Route: 065
  8. CARDILOL [CARVEDILOL] [Concomitant]
     Indication: Pulse abnormal
  9. POTASSIUM [Concomitant]
     Active Substance: POTASSIUM
     Indication: Product used for unknown indication
     Dosage: 246 MILLIGRAM, QD (AT NIGHT)
     Route: 065
  10. PROCAINE [Concomitant]
     Active Substance: PROCAINE
     Indication: Product used for unknown indication
     Dosage: UNK UNK, QD
     Route: 065
  11. MORPHINE [Concomitant]
     Active Substance: MORPHINE
     Indication: Product used for unknown indication
     Dosage: UNK, QD
     Route: 065

REACTIONS (9)
  - Dizziness [Unknown]
  - Hypoaesthesia [Not Recovered/Not Resolved]
  - Skin discolouration [Not Recovered/Not Resolved]
  - General physical health deterioration [Not Recovered/Not Resolved]
  - Fatigue [Recovered/Resolved]
  - Tooth discolouration [Recovered/Resolved]
  - Urinary tract infection [Recovered/Resolved]
  - Hypoaesthesia eye [Not Recovered/Not Resolved]
  - Vision blurred [Not Recovered/Not Resolved]

NARRATIVE: CASE EVENT DATE: 20220101
